FAERS Safety Report 23634100 (Version 1)
Quarter: 2024Q1

REPORT INFORMATION
  Report Type: Spontaneous
  Country: FR (occurrence: FR)
  Receive Date: 20240314
  Receipt Date: 20240314
  Transmission Date: 20240410
  Serious: Yes (Life-Threatening, Hospitalization)
  Sender: FDA-Public Use
  Company Number: None

PATIENT
  Age: 0 Day
  Weight: 3.2 kg

DRUGS (4)
  1. FLUOXETINE HYDROCHLORIDE [Suspect]
     Active Substance: FLUOXETINE HYDROCHLORIDE
     Indication: Foetal exposure during pregnancy
     Dosage: 20 MG, DAILY
     Route: 064
     Dates: start: 20230504, end: 20240130
  2. FLUOXETINE HYDROCHLORIDE [Suspect]
     Active Substance: FLUOXETINE HYDROCHLORIDE
     Indication: Foetal exposure during pregnancy
     Dosage: 20 MG, DAILY
     Route: 064
     Dates: start: 20230504, end: 20240130
  3. QUETIAPINE [Concomitant]
     Active Substance: QUETIAPINE
     Indication: Foetal exposure during pregnancy
     Dosage: 50 MG, DAILY
     Route: 064
     Dates: start: 20230504, end: 20240130
  4. QUETIAPINE [Concomitant]
     Active Substance: QUETIAPINE
     Indication: Foetal exposure during pregnancy
     Dosage: 50 MG, DAILY
     Route: 064
     Dates: start: 20230504, end: 20240130

REACTIONS (3)
  - Hypotonia [Recovered/Resolved]
  - Neonatal hypoxia [Recovered/Resolved]
  - Foetal exposure during pregnancy [Recovered/Resolved]

NARRATIVE: CASE EVENT DATE: 20240130
